FAERS Safety Report 13220119 (Version 1)
Quarter: 2017Q1

REPORT INFORMATION
  Report Type: Spontaneous
  Country: FR (occurrence: FR)
  Receive Date: 20170210
  Receipt Date: 20170210
  Transmission Date: 20170428
  Serious: Yes (Hospitalization)
  Sender: FDA-Public Use
  Company Number: FR-ROCHE-1890977

PATIENT
  Age: 32 Year
  Sex: Female
  Weight: 65 kg

DRUGS (3)
  1. VALIUM [Suspect]
     Active Substance: DIAZEPAM
     Indication: MANIA
     Dosage: UP TO 40 MG/DAY
     Route: 048
     Dates: start: 20170119, end: 20170125
  2. OLANZAPINE. [Suspect]
     Active Substance: OLANZAPINE
     Indication: MANIA
     Route: 048
     Dates: start: 20170119, end: 20170125
  3. LARGACTIL [Suspect]
     Active Substance: CHLORPROMAZINE
     Indication: MANIA
     Dosage: UPTO 100 MG/DAY
     Route: 048
     Dates: start: 20170119, end: 20170125

REACTIONS (2)
  - Pyrexia [Recovered/Resolved]
  - Hepatocellular injury [Recovering/Resolving]

NARRATIVE: CASE EVENT DATE: 20170125
